FAERS Safety Report 8576921-5 (Version None)
Quarter: 2012Q3

REPORT INFORMATION
  Report Type: 
  Country: None (occurrence: None)
  Receive Date: 20120807
  Receipt Date: 20120731
  Transmission Date: 20120928
  Serious: Yes (Hospitalization)
  Sender: FDA-Public Use
  Company Number: PHHY2012BR044454

PATIENT
  Sex: Female
  Weight: 68 kg

DRUGS (5)
  1. ACTONEL [Concomitant]
     Indication: OSTEOPOROSIS
     Dosage: UNK
     Dates: start: 20120101
  2. ACETYLCYSTEINE [Concomitant]
     Indication: PNEUMONIA
     Dosage: 1 DF AT NIGHT
  3. EXELON [Suspect]
     Indication: AMNESIA
     Dosage: 4.6 MG, QD
     Route: 062
     Dates: start: 20120101
  4. SOMALGIN [Concomitant]
     Indication: CARDIAC DISORDER
     Dosage: 1 TABLET A DAY
     Dates: start: 20080101
  5. CALTREN [Concomitant]
     Dosage: 1 TABLET A DAY
     Route: 048
     Dates: start: 20080101

REACTIONS (4)
  - PNEUMONIA [None]
  - PLEURAL EFFUSION [None]
  - ASTHENIA [None]
  - PAIN [None]
